FAERS Safety Report 5441804-6 (Version None)
Quarter: 2007Q3

REPORT INFORMATION
  Report Type: 
  Country: None (occurrence: None)
  Receive Date: 20070830
  Receipt Date: 20070830
  Transmission Date: 20080115
  Serious: No
  Sender: FDA-Public Use
  Company Number: None

PATIENT
  Age: 62 Year
  Sex: Female
  Weight: 73 kg

DRUGS (15)
  1. TIGECYCLINE 50 MG WYETH [Suspect]
     Indication: WOUND INFECTION STAPHYLOCOCCAL
     Dosage: 50 MG Q12HR IV
     Route: 042
     Dates: start: 20070819, end: 20070824
  2. ENOXAPARIN SODIUM [Concomitant]
  3. FERROUS SULFATE TAB [Concomitant]
  4. INTERFERON BETA 1-A [Concomitant]
  5. PROPOFOL [Concomitant]
  6. MIDAZOLAM HCL [Concomitant]
  7. FENTANYL [Concomitant]
  8. BIAFINE [Concomitant]
  9. DESIPRAMINE HCL [Concomitant]
  10. DOCUSATE SODIUM [Concomitant]
  11. FENTANYL [Concomitant]
  12. MULTIVITAMINS + ZINCE [Concomitant]
  13. PANTOPRAZOLE SODIUM [Concomitant]
  14. SERTRALINE [Concomitant]
  15. PERCOCET [Concomitant]

REACTIONS (1)
  - PANCREATITIS [None]
